FAERS Safety Report 7183539-8 (Version None)
Quarter: 2010Q4

REPORT INFORMATION
  Report Type: 
  Country: None (occurrence: None)
  Receive Date: 20101222
  Receipt Date: 20101220
  Transmission Date: 20110411
  Serious: Yes (Death, Hospitalization, Other)
  Sender: FDA-Public Use
  Company Number: PHHY2009GB26494

PATIENT
  Sex: Female

DRUGS (2)
  1. CLOZARIL [Suspect]
     Indication: SCHIZOPHRENIA
     Dosage: UNK
     Dates: start: 20040604
  2. CLOZARIL [Suspect]
     Dosage: 250 MG DAILY

REACTIONS (8)
  - CARDIAC ARREST [None]
  - COGNITIVE DISORDER [None]
  - DYSPNOEA [None]
  - FALL [None]
  - LUNG NEOPLASM MALIGNANT [None]
  - METASTASIS [None]
  - PNEUMONIA [None]
  - RESPIRATORY FAILURE [None]
